FAERS Safety Report 6869481-8 (Version None)
Quarter: 2010Q3

REPORT INFORMATION
  Report Type: 
  Country: None (occurrence: None)
  Receive Date: 20100722
  Receipt Date: 20080804
  Transmission Date: 20110219
  Serious: No
  Sender: FDA-Public Use
  Company Number: US-PFIZER INC-2008064778

PATIENT
  Sex: Female

DRUGS (1)
  1. CHANTIX [Suspect]
     Indication: SMOKING CESSATION THERAPY
     Dates: start: 20080728

REACTIONS (6)
  - ABDOMINAL DISCOMFORT [None]
  - BONE PAIN [None]
  - DECREASED APPETITE [None]
  - DRUG INTOLERANCE [None]
  - MALAISE [None]
  - VOMITING [None]
